FAERS Safety Report 9684634 (Version 1)
Quarter: 2013Q4

REPORT INFORMATION
  Report Type: Spontaneous
  Country: US (occurrence: US)
  Receive Date: 20131112
  Receipt Date: 20131112
  Transmission Date: 20140711
  Serious: Yes (Disabling)
  Sender: FDA-Public Use
  Company Number: US-B.I. PHARMACEUTICALS,INC./RIDGEFIELD-2013-BI-36436BP

PATIENT
  Age: 8 Decade
  Sex: Female

DRUGS (2)
  1. PRADAXA [Suspect]
     Indication: ATRIAL FIBRILLATION
     Dosage: 300 MG
     Route: 048
     Dates: start: 2013, end: 201310
  2. BETAPACE [Concomitant]
     Indication: ATRIAL FIBRILLATION
     Dates: start: 2013

REACTIONS (1)
  - Retinal haemorrhage [Recovered/Resolved with Sequelae]
